FAERS Safety Report 5307581-4 (Version None)
Quarter: 2007Q2

REPORT INFORMATION
  Report Type: 
  Country: None (occurrence: None)
  Receive Date: 20070425
  Receipt Date: 20070417
  Transmission Date: 20071010
  Serious: Yes (Other)
  Sender: FDA-Public Use
  Company Number: US-PFIZER INC-2007031059

PATIENT
  Sex: Female

DRUGS (6)
  1. ZOLOFT [Suspect]
  2. IMIPRAMINE [Concomitant]
  3. ALPHAGAN [Concomitant]
  4. TIMOPTIC [Concomitant]
  5. XALATAN [Concomitant]
  6. AZOPT [Concomitant]

REACTIONS (4)
  - EYE DISCHARGE [None]
  - INSOMNIA [None]
  - INTRAOCULAR PRESSURE INCREASED [None]
  - OCULAR HYPERAEMIA [None]
